FAERS Safety Report 5879618-5 (Version None)
Quarter: 2008Q3

REPORT INFORMATION
  Report Type: 
  Country: None (occurrence: None)
  Receive Date: 20080911
  Receipt Date: 20080911
  Transmission Date: 20090109
  Serious: Yes (Other)
  Sender: FDA-Public Use
  Company Number: None

PATIENT
  Age: 34 Year
  Sex: Female
  Weight: 54.8852 kg

DRUGS (1)
  1. YAZ [Suspect]
     Indication: CONTRACEPTION
     Dosage: ONE PILL ONCE DAILY PO
     Route: 048
     Dates: start: 20080907, end: 20080909

REACTIONS (4)
  - CRYING [None]
  - DEPRESSION [None]
  - DIZZINESS [None]
  - IMPAIRED DRIVING ABILITY [None]
